FAERS Safety Report 5473052-8 (Version None)
Quarter: 2007Q4

REPORT INFORMATION
  Report Type: 
  Country: None (occurrence: None)
  Receive Date: 20071001
  Receipt Date: 20070918
  Transmission Date: 20080405
  Serious: Yes (Hospitalization)
  Sender: FDA-Public Use
  Company Number: US-AMGEN-US243903

PATIENT
  Sex: Male
  Weight: 87.6 kg

DRUGS (13)
  1. ENBREL [Suspect]
     Indication: DRUG USE FOR UNKNOWN INDICATION
     Route: 058
     Dates: start: 20070417, end: 20070829
  2. FOLIC ACID [Concomitant]
     Route: 048
  3. ASPIRIN [Concomitant]
     Route: 065
  4. ATORVASTATIN CALCIUM [Concomitant]
     Route: 065
  5. BENAZEPRIL HYDROCHLORIDE [Concomitant]
     Route: 065
  6. CLOTRIMAZOLE [Concomitant]
     Route: 048
  7. FELODIPINE [Concomitant]
     Route: 065
  8. FLUCONAZOLE [Concomitant]
     Route: 065
  9. GLIPIZIDE [Concomitant]
     Route: 065
  10. HYDROCHLOROTHIAZIDE [Concomitant]
     Route: 065
  11. MOMETASONE FUROATE [Concomitant]
     Route: 045
  12. OMEPRAZOLE [Concomitant]
     Route: 065
  13. AVELOX [Concomitant]
     Route: 065

REACTIONS (1)
  - PNEUMONIA [None]
